FAERS Safety Report 4768734-7 (Version None)
Quarter: 2005Q3

REPORT INFORMATION
  Report Type: 
  Country: None (occurrence: None)
  Receive Date: 20050914
  Receipt Date: 20050715
  Transmission Date: 20060218
  Serious: Yes (Hospitalization)
  Sender: FDA-Public Use
  Company Number: J200502311

PATIENT
  Age: 7 Year
  Sex: Female

DRUGS (2)
  1. SAWACILLIN [Suspect]
     Dosage: 700MG PER DAY
     Route: 048
     Dates: start: 20050628, end: 20050704
  2. TOMIRON [Concomitant]
     Indication: TONSILLITIS
     Route: 048
     Dates: start: 20050619, end: 20050620

REACTIONS (3)
  - HEPATIC ENZYME INCREASED [None]
  - RASH MACULO-PAPULAR [None]
  - SPLENOMEGALY [None]
